FAERS Safety Report 9259329 (Version 1)
Quarter: 2013Q2

REPORT INFORMATION
  Report Type: Spontaneous
  Country: FR (occurrence: FR)
  Receive Date: 20130427
  Receipt Date: 20130427
  Transmission Date: 20140414
  Serious: Yes (Life-Threatening, Hospitalization)
  Sender: FDA-Public Use
  Company Number: FR-ROCHE-1218519

PATIENT
  Age: 87 Year
  Sex: Female

DRUGS (1)
  1. ANEXATE [Suspect]
     Indication: DELAYED RECOVERY FROM ANAESTHESIA
     Route: 042
     Dates: start: 20130307, end: 20130307

REACTIONS (2)
  - Cardio-respiratory arrest [Recovered/Resolved]
  - Ventricular fibrillation [Recovered/Resolved]
